FAERS Safety Report 15300826 (Version 1)
Quarter: 2018Q3

REPORT INFORMATION
  Report Type: Spontaneous
  Country: US (occurrence: US)
  Receive Date: 20180821
  Receipt Date: 20180821
  Transmission Date: 20181010
  Serious: No
  Sender: FDA-Public Use
  Company Number: US-MYLANLABS-2018M1060777

PATIENT
  Age: 57 Year
  Sex: Female
  Weight: 54 kg

DRUGS (1)
  1. CLOBETASOL PROPIONATE FOAM [Suspect]
     Active Substance: CLOBETASOL PROPIONATE
     Indication: SKIN DISORDER
     Dosage: TWICE A DAY FOR TWO WEEKS
     Route: 061
     Dates: start: 201807

REACTIONS (2)
  - Product quality issue [Unknown]
  - Drug dose omission [Not Recovered/Not Resolved]

NARRATIVE: CASE EVENT DATE: 201807
